FAERS Safety Report 7655421-0 (Version None)
Quarter: 2011Q3

REPORT INFORMATION
  Report Type: 
  Country: None (occurrence: None)
  Receive Date: 20110804
  Receipt Date: 20110726
  Transmission Date: 20111222
  Serious: Yes (Hospitalization)
  Sender: FDA-Public Use
  Company Number: JP-JNJFOC-20110801107

PATIENT

DRUGS (4)
  1. DOXIL [Suspect]
     Indication: OVARIAN CANCER RECURRENT
     Dosage: CYCLE 1
     Route: 042
  2. DOXIL [Suspect]
     Dosage: CYCLE 2
     Route: 042
  3. BEVACIZUMAB [Suspect]
     Indication: OVARIAN CANCER RECURRENT
     Dosage: 2MG/KG/M2/WEEK
     Route: 065
  4. BEVACIZUMAB [Suspect]
     Dosage: 2MG/KG/M2/WEEK
     Route: 065

REACTIONS (2)
  - GASTROINTESTINAL PERFORATION [None]
  - EPISTAXIS [None]
